FAERS Safety Report 22111669 (Version 2)
Quarter: 2023Q2

REPORT INFORMATION
  Report Type: Report from Study
  Country: GB (occurrence: GB)
  Receive Date: 20230318
  Receipt Date: 20230403
  Transmission Date: 20230721
  Serious: No
  Sender: FDA-Public Use
  Company Number: GB-ABBVIE-4344714

PATIENT
  Sex: Male

DRUGS (8)
  1. CARBIDOPA\LEVODOPA [Suspect]
     Active Substance: CARBIDOPA\LEVODOPA
     Indication: Parkinson^s disease
     Dosage: MD:10.2, ED: 1.4, CR:1.1
     Route: 050
  2. CARBIDOPA\LEVODOPA [Suspect]
     Active Substance: CARBIDOPA\LEVODOPA
     Dosage: DUODOPA 20MGS/5MGS; MD:10.0, ED: 1.2, CR:0.9
     Route: 050
  3. CARBIDOPA\LEVODOPA [Suspect]
     Active Substance: CARBIDOPA\LEVODOPA
     Dosage: DUODOPA 20MGS/5MGS; MD:10.0, ED: 1.2, CR:0.9
     Route: 050
  4. PRAMIPEXOLE [Concomitant]
     Active Substance: PRAMIPEXOLE
     Indication: Product used for unknown indication
     Dosage: TIME INTERVAL: 0.33333333 DAYS: 0.7 MG
  5. SELEGILINE [Concomitant]
     Active Substance: SELEGILINE
     Indication: Product used for unknown indication
     Dosage: TIME INTERVAL: 0.33333333 DAYS
  6. SELEGILINE [Concomitant]
     Active Substance: SELEGILINE
     Indication: Product used for unknown indication
  7. AMANTADINE [Concomitant]
     Active Substance: AMANTADINE
     Indication: Product used for unknown indication
     Dosage: TIME INTERVAL: 0.33333333 DAYS
  8. Co-careldopa CR [Concomitant]
     Indication: Product used for unknown indication
     Dosage: 50/200MG

REACTIONS (9)
  - Freezing phenomenon [Recovering/Resolving]
  - Dyskinesia [Unknown]
  - Device power source issue [Recovering/Resolving]
  - Muscle rigidity [Recovering/Resolving]
  - Fall [Recovering/Resolving]
  - Parkinson^s disease [Recovering/Resolving]
  - Device difficult to use [Recovering/Resolving]
  - Incorrect dose administered [Unknown]
  - Abnormal dreams [Unknown]
